FAERS Safety Report 23166534 (Version 1)
Quarter: 2023Q4

REPORT INFORMATION
  Report Type: Spontaneous
  Country: JP (occurrence: JP)
  Receive Date: 20231109
  Receipt Date: 20231109
  Transmission Date: 20240110
  Serious: Yes (Hospitalization, Disabling, Other)
  Sender: FDA-Public Use
  Company Number: JP-MSD-M2023-32557

PATIENT
  Age: 53 Year
  Sex: Female
  Weight: 42 kg

DRUGS (7)
  1. KEYTRUDA [Suspect]
     Active Substance: PEMBROLIZUMAB
     Indication: Triple negative breast cancer
     Dosage: 200 MILLIGRAM, Q3W
     Route: 041
     Dates: start: 20230216, end: 20230626
  2. CARBOPLATIN [Concomitant]
     Active Substance: CARBOPLATIN
     Indication: Triple negative breast cancer
     Dosage: 180 MILLIGRAM, QW
     Route: 041
     Dates: start: 20230216, end: 20230227
  3. CARBOPLATIN [Concomitant]
     Active Substance: CARBOPLATIN
     Dosage: 140 MILLIGRAM, QW
     Route: 041
     Dates: start: 20230313, end: 20230508
  4. PACLITAXEL [Concomitant]
     Active Substance: PACLITAXEL
     Indication: Triple negative breast cancer
     Dosage: 110 MILLIGRAM, QW
     Route: 041
     Dates: start: 20230216, end: 20230327
  5. PACLITAXEL [Concomitant]
     Active Substance: PACLITAXEL
     Dosage: 87 MILLIGRAM, QW
     Route: 041
     Dates: start: 20230403, end: 20230508
  6. EPIRUBICIN HYDROCHLORIDE [Concomitant]
     Active Substance: EPIRUBICIN HYDROCHLORIDE
     Indication: Triple negative breast cancer
     Dosage: 124 MILLIGRAM, Q3W
     Route: 065
     Dates: start: 20230515, end: 20230626
  7. CYCLOPHOSPHAMIDE [Concomitant]
     Active Substance: CYCLOPHOSPHAMIDE
     Indication: Triple negative breast cancer
     Dosage: 829 MILLIGRAM, Q3W
     Route: 065
     Dates: start: 20230515, end: 20230626

REACTIONS (1)
  - Hypothalamo-pituitary disorder [Recovered/Resolved with Sequelae]

NARRATIVE: CASE EVENT DATE: 20230724
